FAERS Safety Report 6381523-5 (Version None)
Quarter: 2009Q3

REPORT INFORMATION
  Report Type: 
  Country: None (occurrence: None)
  Receive Date: 20090925
  Receipt Date: 20090911
  Transmission Date: 20100115
  Serious: Yes (Hospitalization)
  Sender: FDA-Public Use
  Company Number: SG-JNJFOC-20090806626

PATIENT
  Age: 30 Year
  Sex: Female
  Weight: 39 kg

DRUGS (2)
  1. DECITABINE (DECITABINE) LYOPHILIZED POWDER [Suspect]
     Indication: MYELODYSPLASTIC SYNDROME
     Dosage: 1ST INFUSION INTRAVENOUS; 1ST INFUSION
     Route: 042
     Dates: start: 20090706, end: 20090710
  2. DECITABINE (DECITABINE) LYOPHILIZED POWDER [Suspect]
     Indication: MYELODYSPLASTIC SYNDROME
     Dosage: 1ST INFUSION INTRAVENOUS; 1ST INFUSION
     Route: 042
     Dates: start: 20090817

REACTIONS (3)
  - ACUTE FEBRILE NEUTROPHILIC DERMATOSIS [None]
  - HIDRADENITIS [None]
  - SKIN REACTION [None]
